FAERS Safety Report 8597631-4 (Version None)
Quarter: 2012Q3

REPORT INFORMATION
  Report Type: 
  Country: None (occurrence: None)
  Receive Date: 20120816
  Receipt Date: 20120814
  Transmission Date: 20120928
  Serious: Yes (Disabling)
  Sender: FDA-Public Use
  Company Number: CA-TEVA-353971USA

PATIENT
  Age: 37 Year
  Sex: Male
  Weight: 64.014 kg

DRUGS (14)
  1. VITAMIN B1 TAB [Concomitant]
  2. LAMOTRIGINE [Suspect]
     Dosage: 25 MILLIGRAM DAILY;
     Route: 048
  3. MAGNESIUM CITRATE [Concomitant]
  4. VITAMIN B3 [Concomitant]
  5. COENZYME Q10 [Concomitant]
  6. FOLIC ACID [Concomitant]
  7. FINASTERIDE [Concomitant]
  8. RIBOFLAVIN CAP [Concomitant]
  9. ASCORBIC ACID [Concomitant]
  10. VITAMIN D [Concomitant]
  11. LOVAZA [Concomitant]
  12. VITAMIN B6 [Concomitant]
  13. PETADOLEX [Suspect]
     Dosage: 150 MILLIGRAM DAILY;
     Route: 048
  14. PANTOTHENIC ACID [Concomitant]

REACTIONS (5)
  - STOMATITIS [None]
  - AKATHISIA [None]
  - PARKINSONISM [None]
  - CONJUNCTIVITIS [None]
  - DRY SKIN [None]
